FAERS Safety Report 8990867 (Version 1)
Quarter: 2012Q4

REPORT INFORMATION
  Report Type: Spontaneous
  Country: CA (occurrence: None)
  Receive Date: 20121220
  Receipt Date: 20121220
  Transmission Date: 20130627
  Serious: Yes (Hospitalization)
  Sender: FDA-Public Use
  Company Number: IMP_06122_2012

PATIENT
  Age: 48 Year
  Sex: Male

DRUGS (3)
  1. DOXYCYCLINE [Suspect]
     Indication: Q FEVER
     Dosage: (DF)
  2. BENZODIAZEPINE [Concomitant]
  3. TADALAFIL (UNKNOWN) [Concomitant]

REACTIONS (8)
  - Abdominal distension [None]
  - Portal hypertension [None]
  - Ascites [None]
  - Varices oesophageal [None]
  - Portal hypertensive gastropathy [None]
  - Venoocclusive liver disease [None]
  - Splenomegaly [None]
  - Toxicity to various agents [None]
